FAERS Safety Report 7235204-6 (Version None)
Quarter: 2011Q1

REPORT INFORMATION
  Report Type: 
  Country: None (occurrence: None)
  Receive Date: 20110120
  Receipt Date: 20110114
  Transmission Date: 20110831
  Serious: Yes (Disabling)
  Sender: FDA-Public Use
  Company Number: FR-BRISTOL-MYERS SQUIBB COMPANY-15492044

PATIENT
  Age: 47 Year
  Sex: Female
  Weight: 55 kg

DRUGS (5)
  1. CISPLATIN [Suspect]
     Indication: CERVIX CARCINOMA
     Dosage: MOST RECENT INF ON 26AUG2010
     Route: 042
     Dates: start: 20100721
  2. MOTILIUM [Concomitant]
     Indication: NAUSEA
     Route: 048
     Dates: start: 20100802
  3. IMODIUM [Concomitant]
     Indication: DIARRHOEA
     Route: 048
     Dates: start: 20100806
  4. CETUXIMAB [Suspect]
     Indication: CERVIX CARCINOMA
     Dosage: MOST RECENT INFUSION ON 26AUG2010
     Route: 042
     Dates: start: 20100721
  5. VOGALENE [Concomitant]
     Indication: NAUSEA
     Route: 048
     Dates: start: 20100816

REACTIONS (2)
  - HAEMORRHAGE [None]
  - ACNE [None]
